FAERS Safety Report 8413850-1 (Version None)
Quarter: 2012Q2

REPORT INFORMATION
  Report Type: 
  Country: None (occurrence: None)
  Receive Date: 20120605
  Receipt Date: 20120524
  Transmission Date: 20120825
  Serious: No
  Sender: FDA-Public Use
  Company Number: US-ASTRAZENECA-2012SE33582

PATIENT
  Sex: Male

DRUGS (2)
  1. TOPROL-XL [Suspect]
     Indication: HYPERTENSION
     Dosage: GENERIC
     Route: 048
  2. METOPROLOL TARTRATE [Concomitant]
     Route: 048

REACTIONS (2)
  - PALPITATIONS [None]
  - INTENTIONAL DRUG MISUSE [None]
